FAERS Safety Report 5207166-4 (Version None)
Quarter: 2007Q1

REPORT INFORMATION
  Report Type: 
  Country: None (occurrence: None)
  Receive Date: 20070112
  Receipt Date: 20070102
  Transmission Date: 20070707
  Serious: Yes (Death, Hospitalization)
  Sender: FDA-Public Use
  Company Number: FR-SANOFI-SYNTHELABO-A02200601337

PATIENT
  Age: 54 Year
  Sex: Female

DRUGS (7)
  1. POLARAMINE [Concomitant]
     Indication: PREMEDICATION
     Route: 065
     Dates: start: 20040101, end: 20040101
  2. ZOFRAN [Concomitant]
     Indication: PREMEDICATION
     Route: 065
     Dates: start: 20040101, end: 20040101
  3. RANIPLEX [Concomitant]
     Indication: PREMEDICATION
     Route: 065
     Dates: start: 20040101, end: 20040101
  4. SOLU-MEDROL [Concomitant]
     Indication: PREMEDICATION
     Route: 065
     Dates: start: 20041103, end: 20041104
  5. ELOXATIN [Suspect]
     Indication: RECTOSIGMOID CANCER
     Route: 042
     Dates: start: 20041104, end: 20041104
  6. ZOCOR [Concomitant]
     Route: 065
  7. ARTEX [Concomitant]
     Route: 065

REACTIONS (2)
  - ABDOMINAL PAIN [None]
  - SHOCK [None]
